FAERS Safety Report 17348935 (Version 1)
Quarter: 2020Q1

REPORT INFORMATION
  Report Type: Spontaneous
  Country: US (occurrence: US)
  Receive Date: 20200129
  Receipt Date: 20200129
  Transmission Date: 20200409
  Serious: Yes (Hospitalization)
  Sender: FDA-Public Use
  Company Number: None

PATIENT
  Sex: Female

DRUGS (6)
  1. TACROLIMUS. [Suspect]
     Active Substance: TACROLIMUS
     Indication: TRANSPLANT
     Dosage: ?          OTHER FREQUENCY:1 CAP EVERY 12 HRS;?
     Route: 048
     Dates: start: 20151015
  2. PROMETHAZINE TAB 25MG [Concomitant]
  3. SYNTHROID [Concomitant]
     Active Substance: LEVOTHYROXINE SODIUM
  4. MULTIVITAMIN CAP [Concomitant]
  5. PREDNISONE TAB 5MG [Concomitant]
     Active Substance: PREDNISONE
  6. AZATHIOPRINE TAB 50MG [Concomitant]
     Active Substance: AZATHIOPRINE

REACTIONS (2)
  - Therapy cessation [None]
  - Herpes zoster [None]
